FAERS Safety Report 21376330 (Version 9)
Quarter: 2022Q4

REPORT INFORMATION
  Report Type: Report from Study
  Country: FR (occurrence: FR)
  Receive Date: 20220926
  Receipt Date: 20221230
  Transmission Date: 20230112
  Serious: Yes (Hospitalization)
  Sender: FDA-Public Use
  Company Number: FR-GILEAD-2022-0598426

PATIENT
  Sex: Male
  Weight: 78 kg

DRUGS (33)
  1. SACITUZUMAB GOVITECAN [Suspect]
     Active Substance: SACITUZUMAB GOVITECAN
     Indication: Non-small cell lung cancer
     Dosage: 800 MG, D1; D8 EVERY 3 WEEKS
     Route: 042
     Dates: start: 20220905, end: 20220905
  2. SACITUZUMAB GOVITECAN [Suspect]
     Active Substance: SACITUZUMAB GOVITECAN
     Dosage: 810 MG
     Route: 042
     Dates: start: 20220912, end: 20220912
  3. SACITUZUMAB GOVITECAN [Suspect]
     Active Substance: SACITUZUMAB GOVITECAN
     Dosage: 593 MG
     Route: 042
     Dates: start: 20221003, end: 20221003
  4. SACITUZUMAB GOVITECAN [Suspect]
     Active Substance: SACITUZUMAB GOVITECAN
     Dosage: 608 MG
     Route: 042
     Dates: start: 20221017, end: 20221017
  5. SACITUZUMAB GOVITECAN [Suspect]
     Active Substance: SACITUZUMAB GOVITECAN
     Dosage: 608 MG
     Route: 042
     Dates: start: 20221031, end: 20221031
  6. SACITUZUMAB GOVITECAN [Suspect]
     Active Substance: SACITUZUMAB GOVITECAN
     Dosage: 608 MG
     Route: 042
     Dates: start: 20221107, end: 20221107
  7. SACITUZUMAB GOVITECAN [Suspect]
     Active Substance: SACITUZUMAB GOVITECAN
     Dosage: 608 MG
     Route: 042
     Dates: start: 20221121, end: 20221121
  8. METFORMIN HYDROCHLORIDE [Concomitant]
     Active Substance: METFORMIN HYDROCHLORIDE
     Indication: Type 2 diabetes mellitus
     Route: 048
     Dates: start: 20140815
  9. METHYLPREDNISOLONE [Concomitant]
     Active Substance: METHYLPREDNISOLONE
     Indication: Prophylaxis
     Route: 042
     Dates: start: 20220905
  10. ASPIRIN [Concomitant]
     Active Substance: ASPIRIN
     Indication: Coronary artery disease
     Route: 048
     Dates: start: 20140815
  11. PHLOROGLUCINOL [Concomitant]
     Active Substance: PHLOROGLUCINOL
     Indication: Escherichia urinary tract infection
     Route: 048
     Dates: start: 20220825
  12. LOPERAMIDE [Concomitant]
     Active Substance: LOPERAMIDE
     Indication: Diarrhoea
     Dosage: UNK
     Route: 048
     Dates: start: 20220912, end: 20220919
  13. POLARAMINE [Concomitant]
     Active Substance: DEXCHLORPHENIRAMINE MALEATE
     Indication: Prophylaxis
     Route: 042
     Dates: start: 20220905
  14. ACETAMINOPHEN [Concomitant]
     Active Substance: ACETAMINOPHEN
     Indication: Prophylaxis
     Route: 042
     Dates: start: 20220905
  15. CEFIXIME [Concomitant]
     Active Substance: CEFIXIME
     Indication: Escherichia urinary tract infection
     Route: 048
     Dates: start: 20220825, end: 20220908
  16. CEFTRIAXONE [Concomitant]
     Active Substance: CEFTRIAXONE
     Indication: Urinary tract infection
     Route: 048
     Dates: start: 20220823, end: 20220825
  17. LEVOFLOXACIN [Concomitant]
     Active Substance: LEVOFLOXACIN
     Indication: Urinary tract infection
     Route: 048
     Dates: start: 20220823, end: 20220825
  18. PANTOPRAZOLE [Concomitant]
     Active Substance: PANTOPRAZOLE
     Indication: Prophylaxis
     Route: 048
     Dates: start: 20220819
  19. EZETIMIBE\SIMVASTATIN [Concomitant]
     Active Substance: EZETIMIBE\SIMVASTATIN
     Indication: Coronary artery disease
     Route: 048
     Dates: start: 20220815
  20. RAMIPRIL [Concomitant]
     Active Substance: RAMIPRIL
     Indication: Coronary artery disease
     Route: 048
     Dates: start: 20140815
  21. GABAPENTIN [Concomitant]
     Active Substance: GABAPENTIN
     Indication: Pain
     Dosage: UNK
     Route: 048
     Dates: start: 202209, end: 20220921
  22. GABAPENTIN [Concomitant]
     Active Substance: GABAPENTIN
     Indication: Neuropathy peripheral
  23. COLCHICINE\DICYCLOMINE HYDROCHLORIDE [Concomitant]
     Active Substance: COLCHICINE\DICYCLOMINE HYDROCHLORIDE
     Indication: Diarrhoea
     Route: 048
     Dates: start: 202209, end: 20220921
  24. BACTRIM [Concomitant]
     Active Substance: SULFAMETHOXAZOLE\TRIMETHOPRIM
     Indication: Escherichia urinary tract infection
     Route: 048
     Dates: start: 20220915, end: 20220919
  25. POLYETHYLENE GLYCOLS [Concomitant]
     Active Substance: POLYETHYLENE GLYCOLS
     Route: 048
     Dates: start: 20220921
  26. MORPHINE SULFATE [Concomitant]
     Active Substance: MORPHINE SULFATE
     Route: 048
     Dates: start: 20220923
  27. GINKGO EXTRACT\HEPTAMINOL\TROXERUTIN [Concomitant]
     Active Substance: GINKGO\HEPTAMINOL\TROXERUTIN
     Indication: Haemorrhoids
     Route: 048
     Dates: start: 20220921
  28. TITANOREINE A LA LIDOCAINE [Concomitant]
     Indication: Haemorrhoids
     Route: 003
     Dates: start: 20220919
  29. BEPANTHEN [PANTHENOL] [Concomitant]
     Indication: Haemorrhoids
     Route: 003
     Dates: start: 20220921
  30. ALFUZOSIN [Concomitant]
     Active Substance: ALFUZOSIN
     Indication: Escherichia urinary tract infection
     Route: 048
     Dates: start: 20220919
  31. KARDEGIC [Concomitant]
     Active Substance: ASPIRIN DL-LYSINE
     Route: 048
     Dates: start: 20220924
  32. LANSOPRAZOLE [Concomitant]
     Active Substance: LANSOPRAZOLE
     Indication: Nausea
     Route: 048
     Dates: start: 20220921
  33. ATROVENT [Concomitant]
     Active Substance: IPRATROPIUM BROMIDE
     Indication: Rhinorrhoea
     Route: 055
     Dates: start: 20221121

REACTIONS (5)
  - Urinary tract infection staphylococcal [Recovered/Resolved]
  - Prostatitis [Recovered/Resolved]
  - Febrile bone marrow aplasia [Recovered/Resolved]
  - Urinary tract infection [Recovered/Resolved]
  - Urinary retention [Not Recovered/Not Resolved]

NARRATIVE: CASE EVENT DATE: 20220918
